FAERS Safety Report 7092891-3 (Version None)
Quarter: 2010Q4

REPORT INFORMATION
  Report Type: 
  Country: None (occurrence: None)
  Receive Date: 20101110
  Receipt Date: 20101108
  Transmission Date: 20110411
  Serious: No
  Sender: FDA-Public Use
  Company Number: US-PFIZER INC-2010099201

PATIENT
  Sex: Female
  Weight: 99.773 kg

DRUGS (5)
  1. CHANTIX [Suspect]
     Indication: SMOKING CESSATION THERAPY
     Dosage: 0.5 MG, 1X/DAY
     Route: 048
     Dates: start: 20100701
  2. CHANTIX [Suspect]
     Dosage: 1 MG, 2X/DAY
     Route: 048
     Dates: start: 20100701, end: 20100805
  3. CHANTIX [Suspect]
     Dosage: UNK
  4. ADIPEX [Concomitant]
     Indication: WEIGHT DECREASED
     Dosage: 37.5 MG, UNK
  5. METFORMIN [Concomitant]
     Indication: BLOOD GLUCOSE ABNORMAL
     Dosage: UNK

REACTIONS (6)
  - DIARRHOEA [None]
  - DYSGEUSIA [None]
  - MOOD ALTERED [None]
  - NAUSEA [None]
  - STRESS [None]
  - TONGUE DISCOLOURATION [None]
